FAERS Safety Report 15050250 (Version 4)
Quarter: 2019Q1

REPORT INFORMATION
  Report Type: Report from Study
  Country: DE (occurrence: DE)
  Receive Date: 20180622
  Receipt Date: 20190214
  Transmission Date: 20190417
  Serious: Yes (Hospitalization)
  Sender: FDA-Public Use
  Company Number: DE-MYLANLABS-2018M1042649

PATIENT
  Age: 68 Year
  Sex: Female
  Weight: 53 kg

DRUGS (15)
  1. HYDROXYCHLOROQUINE [Suspect]
     Active Substance: HYDROXYCHLOROQUINE
     Dosage: 10-15 MG
     Route: 065
     Dates: start: 201002
  2. RITUXIMAB. [Suspect]
     Active Substance: RITUXIMAB
     Dosage: 1000 MG, UNK
     Route: 065
     Dates: start: 201008
  3. METHOTREXATE. [Suspect]
     Active Substance: METHOTREXATE
     Dosage: UNK
  4. HYDROXYCHLOROQUINE [Suspect]
     Active Substance: HYDROXYCHLOROQUINE
     Indication: RHEUMATOID ARTHRITIS
     Dosage: 10-15 MG
     Route: 048
     Dates: start: 200207, end: 200210
  5. RITUXIMAB. [Suspect]
     Active Substance: RITUXIMAB
     Dosage: 1000 MG, UNK
     Route: 065
     Dates: start: 201605
  6. RITUXIMAB. [Suspect]
     Active Substance: RITUXIMAB
     Dosage: 1000 MG, UNK
     Route: 065
     Dates: start: 201307
  7. RITUXIMAB. [Suspect]
     Active Substance: RITUXIMAB
     Dosage: 1000 MG, UNK
     Route: 065
     Dates: start: 201402
  8. METHOTREXATE. [Suspect]
     Active Substance: METHOTREXATE
     Indication: RHEUMATOID ARTHRITIS
     Dosage: UNK
     Route: 065
     Dates: start: 200101
  9. HYDROXYCHLOROQUINE [Suspect]
     Active Substance: HYDROXYCHLOROQUINE
     Dosage: UNK
  10. RITUXIMAB. [Suspect]
     Active Substance: RITUXIMAB
     Dosage: 1000 MG, UNK
     Route: 065
     Dates: start: 201102
  11. RITUXIMAB. [Suspect]
     Active Substance: RITUXIMAB
     Dosage: 1000 MG, UNK
     Route: 065
     Dates: start: 201211
  12. RITUXIMAB. [Suspect]
     Active Substance: RITUXIMAB
     Dosage: 1000 MG, UNK
     Route: 065
     Dates: start: 201506
  13. HYDROXYCHLOROQUINE [Suspect]
     Active Substance: HYDROXYCHLOROQUINE
     Dosage: UNK
     Route: 048
  14. RITUXIMAB. [Suspect]
     Active Substance: RITUXIMAB
     Dosage: 1000 MG, UNK
     Route: 065
     Dates: start: 201203
  15. RITUXIMAB. [Suspect]
     Active Substance: RITUXIMAB
     Indication: RHEUMATOID ARTHRITIS
     Dosage: 1000 MG, UNK
     Route: 065
     Dates: start: 201002

REACTIONS (2)
  - Intervertebral disc protrusion [Unknown]
  - Infected seroma [Unknown]

NARRATIVE: CASE EVENT DATE: 20170324
